FAERS Safety Report 6025463-X (Version None)
Quarter: 2008Q4

REPORT INFORMATION
  Report Type: 
  Country: None (occurrence: None)
  Receive Date: 20081231
  Receipt Date: 20081222
  Transmission Date: 20090506
  Serious: Yes (Other)
  Sender: FDA-Public Use
  Company Number: US-PFIZER INC-2008054688

PATIENT
  Sex: Female

DRUGS (1)
  1. CHANTIX [Suspect]
     Route: 048

REACTIONS (1)
  - ARTERIAL BYPASS OPERATION [None]
